FAERS Safety Report 4684038-5 (Version None)
Quarter: 2005Q2

REPORT INFORMATION
  Report Type: 
  Country: None (occurrence: None)
  Receive Date: 20050525
  Receipt Date: 20050201
  Transmission Date: 20051028
  Serious: Yes (Other)
  Sender: FDA-Public Use
  Company Number: PHEH2005US01522

PATIENT
  Age: 43 Year
  Sex: Male

DRUGS (1)
  1. DESFERAL [Suspect]
     Indication: WHOLE BLOOD TRANSFUSION
     Dates: start: 20031101, end: 20050120

REACTIONS (2)
  - DEAFNESS BILATERAL [None]
  - VISUAL DISTURBANCE [None]
